FAERS Safety Report 8170403-0 (Version None)
Quarter: 2012Q1

REPORT INFORMATION
  Report Type: 
  Country: None (occurrence: None)
  Receive Date: 20120228
  Receipt Date: 20120214
  Transmission Date: 20120608
  Serious: Yes (Hospitalization, Other)
  Sender: FDA-Public Use
  Company Number: US-ELI_LILLY_AND_COMPANY-US201202004517

PATIENT
  Sex: Male

DRUGS (3)
  1. CYMBALTA [Suspect]
     Dosage: 20 MG, QD
  2. CYMBALTA [Suspect]
     Dosage: 1 DF, QD
     Dates: start: 20120211
  3. CYMBALTA [Suspect]
     Indication: BACK PAIN
     Dosage: 60 MG, QD

REACTIONS (5)
  - DIZZINESS [None]
  - PARAESTHESIA [None]
  - WRONG TECHNIQUE IN DRUG USAGE PROCESS [None]
  - DRUG WITHDRAWAL SYNDROME [None]
  - CARDIAC OPERATION [None]
